FAERS Safety Report 10218540 (Version 5)
Quarter: 2015Q1

REPORT INFORMATION
  Report Type: Spontaneous
  Country: US (occurrence: US)
  Receive Date: 20140605
  Receipt Date: 20150212
  Transmission Date: 20150720
  Serious: Yes (Hospitalization, Other)
  Sender: FDA-Public Use
  Company Number: US-009507513-1011USA03393

PATIENT
  Sex: Female
  Weight: 63.5 kg

DRUGS (4)
  1. FOSAMAX PLUS D [Suspect]
     Active Substance: ALENDRONATE SODIUM\CHOLECALCIFEROL
     Indication: OSTEOPOROSIS
     Route: 048
  2. FOSAMAX [Suspect]
     Active Substance: ALENDRONATE SODIUM
     Indication: OSTEOPOROSIS
     Dosage: 70 MG, QW
     Route: 048
     Dates: start: 20000201, end: 20000416
  3. FOSAMAX [Suspect]
     Active Substance: ALENDRONATE SODIUM
     Indication: OSTEOPENIA
     Dosage: 35 MG, QW
     Route: 048
     Dates: start: 20010404, end: 20011013
  4. FOSAMAX [Suspect]
     Active Substance: ALENDRONATE SODIUM
     Dosage: 70 MG, QW
     Route: 048
     Dates: start: 20011014, end: 20071202

REACTIONS (24)
  - Intramedullary rod insertion [Recovered/Resolved]
  - Asthma [Unknown]
  - Micturition urgency [Unknown]
  - Haemorrhoids [Unknown]
  - Meniscus injury [Unknown]
  - Hyperlipidaemia [Unknown]
  - Hypertonic bladder [Unknown]
  - Tremor [Unknown]
  - Urinary incontinence [Unknown]
  - Femur fracture [Recovered/Resolved]
  - Type 2 diabetes mellitus [Unknown]
  - Pancreatic cyst [Unknown]
  - Meniscus injury [Unknown]
  - Rash [Unknown]
  - Drug hypersensitivity [Unknown]
  - Intramedullary rod insertion [Recovered/Resolved]
  - Goitre [Unknown]
  - Nocturia [Recovering/Resolving]
  - Breast discharge [Unknown]
  - Bone pain [Unknown]
  - Femur fracture [Recovered/Resolved]
  - Deep vein thrombosis [Unknown]
  - Large intestine polyp [Unknown]
  - Urticaria [Unknown]

NARRATIVE: CASE EVENT DATE: 20000417
